FAERS Safety Report 8220411-6 (Version None)
Quarter: 2012Q1

REPORT INFORMATION
  Report Type: 
  Country: None (occurrence: None)
  Receive Date: 20120316
  Receipt Date: 20120306
  Transmission Date: 20120608
  Serious: Yes (Hospitalization)
  Sender: FDA-Public Use
  Company Number: ACO_29614_2012

PATIENT
  Age: 58 Year
  Sex: Male

DRUGS (4)
  1. BETASERON [Concomitant]
  2. BACLOFEN [Concomitant]
  3. AMPYRA [Suspect]
     Indication: GAIT DISTURBANCE
     Dosage: 10 MG, BID, ORAL
     Route: 048
     Dates: start: 20111001, end: 20111111
  4. PROVIGIL [Concomitant]

REACTIONS (3)
  - SEPSIS [None]
  - KIDNEY INFECTION [None]
  - URINARY TRACT INFECTION [None]
